FAERS Safety Report 5093100-7 (Version None)
Quarter: 2006Q3

REPORT INFORMATION
  Report Type: 
  Country: None (occurrence: None)
  Receive Date: 20060828
  Receipt Date: 20060810
  Transmission Date: 20061208
  Serious: Yes (Hospitalization, Other)
  Sender: FDA-Public Use
  Company Number: TRP_0804_2006

PATIENT
  Age: 41 Year
  Sex: Male

DRUGS (5)
  1. RIBASPHERE [Suspect]
     Indication: HEPATITIS C
     Dosage: 1200 MG QDAY PO
     Route: 048
     Dates: start: 20060128
  2. PEG-INTRON [Suspect]
     Indication: HEPATITIS C
     Dosage: 150 MG QWK SC
     Route: 058
     Dates: start: 20060128
  3. CELEXA [Suspect]
     Indication: DEPRESSION
     Dosage: 40 MG PO
     Route: 048
  4. RIBASPHERE [Suspect]
     Indication: HEPATITIS C
     Dosage: 1200 MG QDAY PO
     Route: 048
     Dates: start: 20060710
  5. PEG-INTRON [Suspect]
     Indication: HEPATITIS C
     Dosage: 150 MCG QWK SC
     Route: 058
     Dates: start: 20060710

REACTIONS (4)
  - DEPRESSION [None]
  - FRUSTRATION [None]
  - INSOMNIA [None]
  - SUICIDAL IDEATION [None]
